FAERS Safety Report 9735551 (Version 2)
Quarter: 2015Q3

REPORT INFORMATION
  Report Type: Spontaneous
  Country: US (occurrence: US)
  Receive Date: 20131206
  Receipt Date: 20150804
  Transmission Date: 20151125
  Serious: Yes (Hospitalization)
  Sender: FDA-Public Use
  Company Number: US-GILEAD-2009-0023875

PATIENT
  Age: 72 Year
  Sex: Male
  Weight: 76.2 kg

DRUGS (13)
  1. REMODULIN [Concomitant]
     Active Substance: TREPROSTINIL
  2. LETAIRIS [Suspect]
     Active Substance: AMBRISENTAN
     Indication: PULMONARY ARTERIAL HYPERTENSION
     Route: 048
     Dates: start: 20090522
  3. LASIX [Concomitant]
     Active Substance: FUROSEMIDE
  4. TERAZOSIN [Concomitant]
     Active Substance: TERAZOSIN\TERAZOSIN HYDROCHLORIDE
  5. VIAGRA [Concomitant]
     Active Substance: SILDENAFIL CITRATE
  6. OXYGEN. [Concomitant]
     Active Substance: OXYGEN
  7. PEPCID [Concomitant]
     Active Substance: FAMOTIDINE
  8. DILTIAZEM [Concomitant]
     Active Substance: DILTIAZEM
  9. ASMANEX [Concomitant]
     Active Substance: MOMETASONE FUROATE
  10. SIMVASTATIN. [Concomitant]
     Active Substance: SIMVASTATIN
  11. ADULT ASPIRIN [Concomitant]
  12. FORADIL [Concomitant]
     Active Substance: FORMOTEROL FUMARATE
  13. SODIUM CHLORIDE. [Concomitant]
     Active Substance: SODIUM CHLORIDE

REACTIONS (1)
  - Anaemia [Unknown]
